FAERS Safety Report 9152381 (Version 1)
Quarter: 2013Q1

REPORT INFORMATION
  Report Type: Spontaneous
  Country: US (occurrence: US)
  Receive Date: 20130308
  Receipt Date: 20130308
  Transmission Date: 20140127
  Serious: No
  Sender: FDA-Public Use
  Company Number: US-009507513-1303USA004086

PATIENT
  Sex: Male

DRUGS (3)
  1. CORICIDIN HBP COUGH AND COLD [Suspect]
     Indication: PRODUCT USED FOR UNKNOWN INDICATION
     Dosage: UNK, UNKNOWN
     Route: 048
     Dates: start: 20130302
  2. CORICIDIN HBP COUGH AND COLD [Suspect]
     Indication: MEDICAL OBSERVATION
  3. LITHIUM [Concomitant]
     Indication: PRODUCT USED FOR UNKNOWN INDICATION
     Dosage: UNK, UNKNOWN

REACTIONS (1)
  - Tinnitus [Not Recovered/Not Resolved]
